FAERS Safety Report 5205049-7 (Version None)
Quarter: 2007Q1

REPORT INFORMATION
  Report Type: 
  Country: None (occurrence: None)
  Receive Date: 20070110
  Receipt Date: 20061012
  Transmission Date: 20070707
  Serious: No
  Sender: FDA-Public Use
  Company Number: US-BRISTOL-MYERS SQUIBB COMPANY-13538608

PATIENT

DRUGS (1)
  1. ABILIFY [Suspect]
     Dosage: DURATION OF THERAPY:  8 TO 9 MONTHS

REACTIONS (2)
  - DRUG WITHDRAWAL SYNDROME [None]
  - EXTRAPYRAMIDAL DISORDER [None]
